FAERS Safety Report 11778287 (Version 1)
Quarter: 2015Q4

REPORT INFORMATION
  Report Type: Spontaneous
  Country: SE (occurrence: SE)
  Receive Date: 20151125
  Receipt Date: 20151125
  Transmission Date: 20160304
  Serious: Yes (Disabling)
  Sender: FDA-Public Use
  Company Number: SE-GLAXOSMITHKLINE-SE2015GSK157122

PATIENT
  Age: 75 Year
  Sex: Female

DRUGS (5)
  1. RELVAR ELLIPTA [Suspect]
     Active Substance: FLUTICASONE FUROATE\VILANTEROL TRIFENATATE
     Indication: CHRONIC OBSTRUCTIVE PULMONARY DISEASE
     Dosage: UNK, QD
     Dates: start: 20150701
  2. SPIRIVA [Concomitant]
     Active Substance: TIOTROPIUM BROMIDE MONOHYDRATE
     Dosage: 18 MG, 1D
  3. KALEROID [Concomitant]
     Active Substance: POTASSIUM CHLORIDE
     Dosage: 1500 MG, BID
  4. FURIX [Concomitant]
     Active Substance: FUROSEMIDE
     Dosage: 20 MG, 1D
  5. NORMORIX MITE [Concomitant]
     Active Substance: AMILORIDE HYDROCHLORIDE\HYDROCHLOROTHIAZIDE
     Dosage: 2.5 MG, 1D

REACTIONS (4)
  - Dyspnoea [Recovering/Resolving]
  - Drug prescribing error [Unknown]
  - Drug ineffective [Unknown]
  - Contusion [Not Recovered/Not Resolved]

NARRATIVE: CASE EVENT DATE: 20151001
